FAERS Safety Report 7865880-6 (Version None)
Quarter: 2011Q4

REPORT INFORMATION
  Report Type: 
  Country: None (occurrence: None)
  Receive Date: 20111028
  Receipt Date: 20110315
  Transmission Date: 20120403
  Serious: No
  Sender: FDA-Public Use
  Company Number: US-GLAXOSMITHKLINE-A0918293A

PATIENT
  Age: 64 Year
  Sex: Male

DRUGS (2)
  1. ADVAIR DISKUS 100/50 [Suspect]
     Indication: CHRONIC OBSTRUCTIVE PULMONARY DISEASE
     Dosage: 2PUFF TWICE PER DAY
     Route: 055
     Dates: start: 20110201
  2. VENTOLIN [Suspect]
     Indication: EMPHYSEMA
     Dosage: 1PUFF FOUR TIMES PER DAY
     Route: 055
     Dates: start: 20110201

REACTIONS (3)
  - ILL-DEFINED DISORDER [None]
  - APHONIA [None]
  - DYSPNOEA [None]
